FAERS Safety Report 9204685 (Version 1)
Quarter: 2013Q2

REPORT INFORMATION
  Report Type: Spontaneous
  Country: US (occurrence: US)
  Receive Date: 20130402
  Receipt Date: 20130402
  Transmission Date: 20140414
  Serious: Yes (Hospitalization)
  Sender: FDA-Public Use
  Company Number: US-BAYER-2013-036856

PATIENT
  Age: 49 Year
  Sex: Female

DRUGS (4)
  1. CIPROFLOXACIN [Suspect]
     Indication: URINARY TRACT INFECTION
  2. CIPROFLOXACIN [Suspect]
     Indication: PYELONEPHRITIS
  3. CLINDAMYCIN [Concomitant]
     Indication: PYELONEPHRITIS
  4. GENTAMICIN [Concomitant]
     Indication: PYELONEPHRITIS

REACTIONS (4)
  - Subarachnoid haemorrhage [Not Recovered/Not Resolved]
  - Meningitis bacterial [Recovering/Resolving]
  - Subarachnoid haemorrhage [Not Recovered/Not Resolved]
  - Drug resistance [None]
